FAERS Safety Report 20609498 (Version 2)
Quarter: 2025Q2

REPORT INFORMATION
  Report Type: Spontaneous
  Country: GB (occurrence: GB)
  Receive Date: 20220318
  Receipt Date: 20250530
  Transmission Date: 20250717
  Serious: Yes (Hospitalization, Other)
  Sender: AUROBINDO
  Company Number: GB-CHEPLA-C20192666

PATIENT
  Age: 57 Year
  Sex: Male

DRUGS (33)
  1. VALGANCICLOVIR [Suspect]
     Active Substance: VALGANCICLOVIR
     Indication: Cytomegalovirus infection reactivation
     Dosage: 450 MICROGRAM, ONCE A DAY
     Route: 065
  2. VALGANCICLOVIR [Suspect]
     Active Substance: VALGANCICLOVIR
     Indication: Cytomegalovirus viraemia
     Dosage: 450 MILLIGRAM, ONCE A DAY
     Route: 048
  3. VALGANCICLOVIR [Suspect]
     Active Substance: VALGANCICLOVIR
     Indication: Prophylaxis
  4. METHYLPREDNISOLONE [Suspect]
     Active Substance: METHYLPREDNISOLONE
     Indication: Immunosuppressant drug therapy
     Route: 042
  5. HUMAN CYTOMEGALOVIRUS IMMUNE GLOBULIN [Suspect]
     Active Substance: HUMAN CYTOMEGALOVIRUS IMMUNE GLOBULIN
     Indication: Cytomegalovirus chorioretinitis
     Route: 065
  6. HUMAN CYTOMEGALOVIRUS IMMUNE GLOBULIN [Suspect]
     Active Substance: HUMAN CYTOMEGALOVIRUS IMMUNE GLOBULIN
     Indication: Cytomegalovirus viraemia
     Dosage: 2 MILLIGRAM/KILOGRAM, EVERY WEEK (FOR 4 WEEKS)
     Route: 065
  7. HUMAN CYTOMEGALOVIRUS IMMUNE GLOBULIN [Suspect]
     Active Substance: HUMAN CYTOMEGALOVIRUS IMMUNE GLOBULIN
     Indication: Cytomegalovirus infection reactivation
     Dosage: UNK UNK, EVERY WEEK
     Route: 065
  8. FOSCARNET [Suspect]
     Active Substance: FOSCARNET
     Indication: Cytomegalovirus viraemia
     Route: 042
  9. FOSCARNET [Suspect]
     Active Substance: FOSCARNET
     Indication: Cytomegalovirus infection reactivation
     Route: 031
  10. AZATHIOPRINE [Suspect]
     Active Substance: AZATHIOPRINE
     Indication: Immunosuppressant drug therapy
     Route: 065
  11. AZATHIOPRINE [Suspect]
     Active Substance: AZATHIOPRINE
     Indication: Immunosuppression
  12. LEFLUNOMIDE [Suspect]
     Active Substance: LEFLUNOMIDE
     Indication: Cytomegalovirus infection reactivation
     Route: 065
  13. LEFLUNOMIDE [Suspect]
     Active Substance: LEFLUNOMIDE
     Indication: Cytomegalovirus viraemia
  14. GANCICLOVIR [Suspect]
     Active Substance: GANCICLOVIR
     Indication: Cytomegalovirus chorioretinitis
     Route: 042
  15. GANCICLOVIR [Suspect]
     Active Substance: GANCICLOVIR
     Indication: Cytomegalovirus viraemia
     Dosage: 2 MILLIGRAM, EVERY WEEK
     Route: 031
  16. GANCICLOVIR [Suspect]
     Active Substance: GANCICLOVIR
     Dosage: 450 MICROGRAM, ONCE A DAY
     Route: 065
  17. GANCICLOVIR [Suspect]
     Active Substance: GANCICLOVIR
     Route: 050
  18. GANCICLOVIR [Suspect]
     Active Substance: GANCICLOVIR
     Dosage: 450 MILLIGRAM, ONCE A DAY
     Route: 048
  19. CYCLOSPORINE [Suspect]
     Active Substance: CYCLOSPORINE
     Indication: Immunosuppressant drug therapy
     Route: 065
  20. CYCLOSPORINE [Suspect]
     Active Substance: CYCLOSPORINE
     Indication: Immunosuppression
  21. PROGRAF [Suspect]
     Active Substance: TACROLIMUS
     Indication: Antiviral treatment
     Dosage: 4 MILLIGRAM, ONCE A DAY (2 MILLIGRAM, BID)
     Route: 048
  22. PROGRAF [Suspect]
     Active Substance: TACROLIMUS
     Indication: Immunosuppressant drug therapy
     Route: 048
  23. LAPINE T-LYMPHOCYTE IMMUNE GLOBULIN [Suspect]
     Active Substance: LAPINE T-LYMPHOCYTE IMMUNE GLOBULIN
     Indication: Immunosuppressant drug therapy
     Route: 065
  24. LAPINE T-LYMPHOCYTE IMMUNE GLOBULIN [Suspect]
     Active Substance: LAPINE T-LYMPHOCYTE IMMUNE GLOBULIN
     Indication: Immunosuppression
  25. PREDNISOLONE [Suspect]
     Active Substance: PREDNISOLONE
     Indication: Immunosuppression
     Dosage: 5 MILLIGRAM, ONCE A DAY
     Route: 065
  26. PREDNISOLONE [Suspect]
     Active Substance: PREDNISOLONE
     Indication: Immunosuppressant drug therapy
     Dosage: 8 MILLIGRAM, ONCE A DAY (FOR 2 MONTHS)
     Route: 065
  27. PREDNISOLONE [Suspect]
     Active Substance: PREDNISOLONE
     Indication: Antiviral treatment
     Dosage: 15 MILLIGRAM, ONCE A DAY
     Route: 065
  28. GANCICLOVIR [Suspect]
     Active Substance: GANCICLOVIR
     Indication: Cytomegalovirus viraemia
     Dosage: 2.5 MILLIGRAM/KILOGRAM, ONCE A DAY (FOR 4 WEEKS)
     Route: 042
  29. GANCICLOVIR [Suspect]
     Active Substance: GANCICLOVIR
     Indication: Cytomegalovirus chorioretinitis
     Route: 042
  30. FOSCARNET [Suspect]
     Active Substance: FOSCARNET
     Indication: Cytomegalovirus chorioretinitis
  31. CYTOTEC [Concomitant]
     Active Substance: MISOPROSTOL
     Indication: Cytomegalovirus viraemia
     Dosage: UNK UNK, EVERY WEEK
     Route: 065
  32. SIROLIMUS [Concomitant]
     Active Substance: SIROLIMUS
     Indication: Antiviral treatment
     Route: 065
  33. SIROLIMUS [Concomitant]
     Active Substance: SIROLIMUS
     Dosage: 1.5 MILLIGRAM, ONCE A DAY
     Route: 065

REACTIONS (14)
  - Cytomegalovirus chorioretinitis [Recovered/Resolved]
  - Nephropathy toxic [Recovering/Resolving]
  - Myelosuppression [Unknown]
  - Retinal detachment [Recovered/Resolved]
  - Retinal scar [Recovered/Resolved]
  - Pleural effusion [Unknown]
  - Visual impairment [Not Recovered/Not Resolved]
  - Pneumonia cytomegaloviral [Recovered/Resolved]
  - Cytomegalovirus viraemia [Recovered/Resolved]
  - Renal impairment [Recovered/Resolved]
  - Drug resistance [Recovered/Resolved]
  - Cytomegalovirus infection reactivation [Recovered/Resolved]
  - Off label use [Unknown]
  - Product use issue [Recovered/Resolved]
